FAERS Safety Report 7215558-7 (Version None)
Quarter: 2011Q1

REPORT INFORMATION
  Report Type: 
  Country: None (occurrence: None)
  Receive Date: 20110104
  Receipt Date: 20110104
  Transmission Date: 20110831
  Serious: Yes (Hospitalization)
  Sender: FDA-Public Use
  Company Number: None

PATIENT
  Sex: Male
  Weight: 73 kg

DRUGS (4)
  1. ELOXATIN [Suspect]
     Dosage: 648 MG
     Dates: end: 20101228
  2. FLUOROURACIL [Suspect]
     Dosage: 17792 MG
     Dates: end: 20101228
  3. BEVACIZUMAB (RHUMAB VEGF) [Suspect]
     Dosage: 1520 MG
     Dates: end: 20101228
  4. LEUCOVORIN CALCIUM [Suspect]
     Dosage: 2292 MG
     Dates: end: 20101214

REACTIONS (4)
  - SPEECH DISORDER [None]
  - MENTAL STATUS CHANGES [None]
  - UNRESPONSIVE TO STIMULI [None]
  - CONFUSIONAL STATE [None]
